FAERS Safety Report 8993084 (Version 1)
Quarter: 2013Q1

REPORT INFORMATION
  Report Type: Spontaneous
  Country: US (occurrence: US)
  Receive Date: 20130102
  Receipt Date: 20130102
  Transmission Date: 20140127
  Serious: Yes (Congenital Anomaly, Other)
  Sender: FDA-Public Use
  Company Number: US-PFIZER INC-2012329620

PATIENT
  Sex: Female

DRUGS (8)
  1. ZOLOFT [Suspect]
     Dosage: UNK
     Route: 064
     Dates: start: 2002
  2. REPLIVA [Concomitant]
     Dosage: UNK
     Route: 064
  3. HYDROCODONE [Concomitant]
     Dosage: UNK
     Route: 064
  4. DIFLUCAN [Concomitant]
     Dosage: UNK
     Route: 064
  5. ZANTAC [Concomitant]
     Dosage: UNK
     Route: 064
  6. NECON [Concomitant]
     Indication: CONTRACEPTION
     Dosage: UNK
     Route: 064
  7. PHENERGAN [Concomitant]
     Dosage: UNK
     Route: 045
  8. CHILDRENS CHEWABLE VITAMINS [Concomitant]
     Dosage: UNK
     Route: 064

REACTIONS (2)
  - Maternal exposure timing unspecified [Unknown]
  - Ventricular septal defect [Unknown]
